FAERS Safety Report 15797015 (Version 1)
Quarter: 2019Q1

REPORT INFORMATION
  Report Type: Spontaneous
  Country: US (occurrence: US)
  Receive Date: 20190107
  Receipt Date: 20190107
  Transmission Date: 20190417
  Serious: Yes (Other)
  Sender: FDA-Public Use
  Company Number: None

PATIENT
  Age: 70 Year
  Sex: Female
  Weight: 93.6 kg

DRUGS (7)
  1. BISACODYL. [Concomitant]
     Active Substance: BISACODYL
  2. APAP [Concomitant]
     Active Substance: ACETAMINOPHEN
  3. CEFEPIME [Suspect]
     Active Substance: CEFEPIME HYDROCHLORIDE
     Indication: SEPSIS
     Dosage: ?          QUANTITY:1 INJECTION(S);?
     Route: 042
     Dates: start: 20181228, end: 20181231
  4. ALBUTEROL. [Concomitant]
     Active Substance: ALBUTEROL
  5. VITAMINS [Concomitant]
     Active Substance: VITAMINS
  6. SENNA [Concomitant]
     Active Substance: SENNA LEAF\SENNOSIDES\SENNOSIDES A AND B
  7. LOVENOX [Concomitant]
     Active Substance: ENOXAPARIN SODIUM

REACTIONS (1)
  - Tonic convulsion [None]

NARRATIVE: CASE EVENT DATE: 20181228
